FAERS Safety Report 10261473 (Version 1)
Quarter: 2014Q2

REPORT INFORMATION
  Report Type: Spontaneous
  Country: DE (occurrence: DE)
  Receive Date: 20140626
  Receipt Date: 20140626
  Transmission Date: 20141212
  Serious: Yes (Hospitalization)
  Sender: FDA-Public Use
  Company Number: DE-AMGEN-DEUSP2014047602

PATIENT
  Sex: Female

DRUGS (11)
  1. NEULASTA [Suspect]
     Indication: B-CELL LYMPHOMA
     Dosage: 6 MG, 1 TIME A DAY FOR 1 DAY
     Route: 058
     Dates: start: 20120915, end: 20120915
  2. RITUXIMAB [Concomitant]
     Indication: B-CELL LYMPHOMA
     Dosage: 585 MG, 1 TIME A DAY FOR 1 DAY
     Route: 042
     Dates: start: 20120925, end: 20120925
  3. CYCLOPHOSPHAMIDE [Concomitant]
     Indication: B-CELL LYMPHOMA
     Dosage: 1102.5 MG, 1 TIME A DAY FOR 1 DAY
     Route: 042
     Dates: start: 20120912, end: 20120912
  4. DOXORUBICINE                       /00330901/ [Concomitant]
     Indication: B-CELL LYMPHOMA
     Dosage: 73.5 MG, 1 TIME A DAY FOR 1 DAY
     Route: 042
     Dates: start: 20120912, end: 20120912
  5. VINCRISTINE [Concomitant]
     Indication: B-CELL LYMPHOMA
     Dosage: 2.96 MG, 1 TIME A DAY FOR 1 DAY
     Route: 042
     Dates: start: 20120912, end: 20120912
  6. PREDNISOLONE [Concomitant]
     Indication: B-CELL LYMPHOMA
     Dosage: 100 MG, 1 TIME A DAY FOR 5 DAYS
     Route: 048
     Dates: start: 20120912, end: 20120916
  7. NEBIVOLOL [Concomitant]
     Indication: HYPERTENSION
     Dosage: 5 MG, 1 TIME A DAY
     Route: 048
  8. MAGNESIUM [Concomitant]
     Indication: MUSCLE SPASMS
     Dosage: 100 MG, 3 TIMES A DAY
     Route: 048
  9. MAGNESIUM [Concomitant]
     Indication: PROPHYLAXIS
  10. LEVODOPA W/BENSERAZIDE [Concomitant]
     Indication: RESTLESS LEGS SYNDROME
     Dosage: 100/25MG, 1XD
     Route: 048
  11. PANTOPRAZOLE SODIUM [Concomitant]
     Indication: PROPHYLAXIS AGAINST GASTROINTESTINAL ULCER
     Dosage: 40 MG, 1 TIME A DAY
     Route: 048

REACTIONS (1)
  - Renal pain [Recovered/Resolved]
